FAERS Safety Report 6826102-8 (Version None)
Quarter: 2010Q3

REPORT INFORMATION
  Report Type: 
  Country: None (occurrence: None)
  Receive Date: 20100709
  Receipt Date: 20100629
  Transmission Date: 20110219
  Serious: Yes (Other)
  Sender: FDA-Public Use
  Company Number: GB-JNJFOC-20100509094

PATIENT
  Sex: Male

DRUGS (1)
  1. REMICADE [Suspect]
     Indication: PSORIASIS
     Route: 042

REACTIONS (6)
  - DEPRESSION [None]
  - IRRITABILITY [None]
  - NAUSEA [None]
  - PANIC DISORDER [None]
  - PSORIASIS [None]
  - TENSION [None]
